FAERS Safety Report 4284671-9 (Version None)
Quarter: 2004Q1

REPORT INFORMATION
  Report Type: 
  Country: None (occurrence: None)
  Receive Date: 20040203
  Receipt Date: 20030911
  Transmission Date: 20041129
  Serious: Yes (Life-Threatening)
  Sender: FDA-Public Use
  Company Number: WAES 0309USA01459

PATIENT
  Age: 60 Year
  Sex: Female

DRUGS (3)
  1. FOSAMAX [Suspect]
     Indication: OSTEOPOROSIS
     Route: 048
     Dates: start: 20030803, end: 20030810
  2. ESTINYL [Concomitant]
  3. CARDIS [Concomitant]

REACTIONS (6)
  - AORTIC VALVE DISEASE [None]
  - ARTHRALGIA [None]
  - DYSPNOEA [None]
  - HEART RATE IRREGULAR [None]
  - OEDEMA PERIPHERAL [None]
  - PAIN IN EXTREMITY [None]
